FAERS Safety Report 7319268-7 (Version None)
Quarter: 2011Q1

REPORT INFORMATION
  Report Type: 
  Country: None (occurrence: None)
  Receive Date: 20110216
  Receipt Date: 20110203
  Transmission Date: 20110831
  Serious: Yes (Other)
  Sender: FDA-Public Use
  Company Number: 026846

PATIENT
  Sex: Female

DRUGS (2)
  1. CORTANCYL [Concomitant]
  2. CIMZIA [Suspect]
     Indication: RHEUMATOID ARTHRITIS
     Dosage: (SUBCUTANEOUS)
     Route: 058
     Dates: start: 20110127, end: 20110127

REACTIONS (3)
  - SWELLING FACE [None]
  - BURNING SENSATION [None]
  - DERMATITIS ALLERGIC [None]
